FAERS Safety Report 21914235 (Version 2)
Quarter: 2023Q1

REPORT INFORMATION
  Report Type: Spontaneous
  Country: JP (occurrence: JP)
  Receive Date: 20230126
  Receipt Date: 20230302
  Transmission Date: 20230417
  Serious: Yes (Other)
  Sender: FDA-Public Use
  Company Number: JP-TAKEDA-2023TJP000941

PATIENT
  Age: 3 Decade
  Sex: Female

DRUGS (2)
  1. ENTYVIO [Suspect]
     Active Substance: VEDOLIZUMAB
     Indication: Crohn^s disease
     Dosage: 300 MILLIGRAM
     Route: 041
  2. MESALAMINE [Suspect]
     Active Substance: MESALAMINE
     Indication: Product used for unknown indication
     Dosage: UNK
     Route: 065

REACTIONS (2)
  - Crohn^s disease [Unknown]
  - Pancreatitis acute [Recovering/Resolving]
